FAERS Safety Report 23981290 (Version 3)
Quarter: 2024Q3

REPORT INFORMATION
  Report Type: Report from Study
  Country: CN (occurrence: CN)
  Receive Date: 20240617
  Receipt Date: 20240823
  Transmission Date: 20241017
  Serious: Yes (Life-Threatening, Hospitalization)
  Sender: ACCORD
  Company Number: CN-HENLIUS-24CN015357

PATIENT
  Age: 59 Year
  Sex: Female
  Weight: 60 kg

DRUGS (13)
  1. DOCETAXEL [Suspect]
     Active Substance: DOCETAXEL\DOCETAXEL ANHYDROUS
     Indication: Invasive ductal breast carcinoma
     Dosage: 126 MILLIGRAM, Q3W
     Route: 042
     Dates: start: 20240522, end: 20240522
  2. TRASTUZUMAB [Suspect]
     Active Substance: TRASTUZUMAB
     Indication: Invasive ductal breast carcinoma
     Dosage: STRENGTH: 150 MG, Q3W
     Route: 042
     Dates: start: 20240522, end: 20240522
  3. PERTUZUMAB [Suspect]
     Active Substance: PERTUZUMAB
     Indication: Invasive ductal breast carcinoma
     Dosage: 840 MILLIGRAM, Q3W
     Route: 042
     Dates: start: 20240522, end: 20240522
  4. POTASSIUM CHLORIDE [Concomitant]
     Active Substance: POTASSIUM CHLORIDE
     Indication: Cardiovascular event prophylaxis
     Dosage: UNK
     Dates: start: 20240522, end: 20240522
  5. MAGNESIUM SULFATE [Concomitant]
     Active Substance: MAGNESIUM SULFATE\MAGNESIUM SULFATE HEPTAHYDRATE
     Indication: Cardiovascular event prophylaxis
     Dosage: UNK
     Dates: start: 20240522, end: 20240522
  6. CIMETIDINE [Concomitant]
     Active Substance: CIMETIDINE
     Indication: Antiallergic therapy
     Dosage: UNK
     Dates: start: 20240522, end: 20240522
  7. DEXAMETHASONE SODIUM PHOSPHATE [Concomitant]
     Active Substance: DEXAMETHASONE PHOSPHATE\DEXAMETHASONE SODIUM PHOSPHATE
     Indication: Antiallergic therapy
     Dosage: UNK
     Dates: start: 20240522, end: 20240522
  8. INSULIN NOS [Concomitant]
     Active Substance: INSULIN NOS
     Indication: Cardiovascular event prophylaxis
     Dosage: UNK
     Dates: start: 20240522, end: 20240522
  9. FOSAPREPITANT DIMEGLUMINE [Concomitant]
     Active Substance: FOSAPREPITANT DIMEGLUMINE
     Indication: Antiemetic supportive care
     Dosage: UNK
     Dates: start: 20240522, end: 20240522
  10. PALONOSETRON HYDROCHLORIDE [Concomitant]
     Active Substance: PALONOSETRON HYDROCHLORIDE
     Indication: Antiemetic supportive care
     Dosage: UNK
     Dates: start: 20240522, end: 20240522
  11. MAGNESIUM ISOGLYCYRRHIZINATE [Concomitant]
     Active Substance: MAGNESIUM ISOGLYCYRRHIZINATE
     Indication: Hepatobiliary disorder prophylaxis
     Dosage: UNK
     Dates: start: 20240522, end: 20240522
  12. SPIRONOLACTONE [Concomitant]
     Active Substance: SPIRONOLACTONE
     Indication: Diuretic therapy
     Dosage: UNK
     Dates: start: 20240522, end: 20240522
  13. ZOLEDRONIC ACID [Concomitant]
     Active Substance: ZOLEDRONIC ACID
     Indication: Metastases to bone
     Dosage: UNK
     Dates: start: 20240522, end: 20240522

REACTIONS (3)
  - White blood cell count decreased [Recovered/Resolved]
  - Febrile neutropenia [Recovered/Resolved]
  - Drug-induced liver injury [Not Recovered/Not Resolved]

NARRATIVE: CASE EVENT DATE: 20240527
